FAERS Safety Report 8274866-1 (Version None)
Quarter: 2012Q2

REPORT INFORMATION
  Report Type: 
  Country: None (occurrence: None)
  Receive Date: 20120411
  Receipt Date: 20120403
  Transmission Date: 20120825
  Serious: Yes (Other)
  Sender: FDA-Public Use
  Company Number: GB-SP-2012-03683

PATIENT
  Sex: Female

DRUGS (1)
  1. IMMUCYST [Suspect]
     Indication: ACCIDENTAL EXPOSURE
     Route: 050

REACTIONS (3)
  - ACCIDENTAL EXPOSURE [None]
  - LOWER RESPIRATORY TRACT INFECTION [None]
  - PNEUMONIA [None]
